FAERS Safety Report 5672055-8 (Version None)
Quarter: 2008Q1

REPORT INFORMATION
  Report Type: 
  Country: None (occurrence: None)
  Receive Date: 20080317
  Receipt Date: 20080317
  Transmission Date: 20080703
  Serious: Yes (Hospitalization)
  Sender: FDA-Public Use
  Company Number: None

PATIENT
  Sex: Male
  Weight: 73.3 kg

DRUGS (4)
  1. FLUOROURACIL [Suspect]
     Dosage: 5208 MG
     Dates: end: 20080305
  2. BEVACIZUMAB (RHUMAB VEGF) [Suspect]
     Dosage: 376 MG
     Dates: end: 20080303
  3. LEUCOVORIN CALCIUM [Suspect]
     Dosage: 744 MG
     Dates: end: 20080303
  4. ELOXATIN [Suspect]
     Dosage: 158 MG
     Dates: end: 20080303

REACTIONS (6)
  - ANGINA UNSTABLE [None]
  - CORONARY ARTERY STENOSIS [None]
  - HAEMATOCRIT DECREASED [None]
  - HEART INJURY [None]
  - IN-STENT CORONARY ARTERY RESTENOSIS [None]
  - THROMBOSIS IN DEVICE [None]
